FAERS Safety Report 22925918 (Version 2)
Quarter: 2024Q3

REPORT INFORMATION
  Report Type: Spontaneous
  Country: US (occurrence: US)
  Receive Date: 20230908
  Receipt Date: 20240908
  Transmission Date: 20241017
  Serious: No
  Sender: AIMMUNE
  Company Number: US-ZENPEP LLC-2023AIMT00092

PATIENT

DRUGS (10)
  1. ZENPEP [Suspect]
     Active Substance: PANCRELIPASE AMYLASE\PANCRELIPASE LIPASE\PANCRELIPASE PROTEASE
     Indication: Pancreatic failure
     Dosage: 15000 USP UNITS, 3-4 PER MEAL
     Route: 048
     Dates: start: 202210, end: 202212
  2. ZENPEP [Suspect]
     Active Substance: PANCRELIPASE AMYLASE\PANCRELIPASE LIPASE\PANCRELIPASE PROTEASE
     Dosage: 15000 USP UNITS, ONCE, LAST DOSE PRIOR SMALL STOOLS
     Route: 048
  3. ZENPEP [Suspect]
     Active Substance: PANCRELIPASE AMYLASE\PANCRELIPASE LIPASE\PANCRELIPASE PROTEASE
     Dosage: 40000 USP UNITS, TWO PER MEAL
     Route: 048
     Dates: start: 202212
  4. ZENPEP [Suspect]
     Active Substance: PANCRELIPASE AMYLASE\PANCRELIPASE LIPASE\PANCRELIPASE PROTEASE
     Dosage: 40 000 USP UNITS, ONCE, LAST DOSE PRIOR EVENT OF DIARRHEA
     Route: 048
     Dates: start: 202308, end: 202308
  5. ELIQUIS [Concomitant]
     Active Substance: APIXABAN
     Indication: Thrombosis prophylaxis
     Dosage: 5 MG, 2X/DAY
  6. LISINOPRIL [Concomitant]
     Active Substance: LISINOPRIL
     Indication: Hypertension
     Dosage: 40 MG, 1X/DAY
  7. FAMOTIDINE [Concomitant]
     Active Substance: FAMOTIDINE
     Indication: Flatulence
     Dosage: 40 MG
  8. FISH OIL [Concomitant]
     Active Substance: FISH OIL
     Indication: Cardiovascular event prophylaxis
  9. PROBIOTICS NOS [Concomitant]
     Active Substance: PROBIOTICS NOS
     Indication: Supplementation therapy
  10. CYANOCOBALAMIN [Concomitant]
     Active Substance: CYANOCOBALAMIN
     Indication: Vitamin B12 decreased

REACTIONS (3)
  - Faecal volume decreased [Recovering/Resolving]
  - Intentional underdose [Recovered/Resolved]
  - Diarrhoea [Not Recovered/Not Resolved]

NARRATIVE: CASE EVENT DATE: 20220101
